FAERS Safety Report 21302514 (Version 1)
Quarter: 2022Q3

REPORT INFORMATION
  Report Type: Report from Study
  Country: CA (occurrence: CA)
  Receive Date: 20220907
  Receipt Date: 20220907
  Transmission Date: 20221027
  Serious: Yes (Other)
  Sender: FDA-Public Use
  Company Number: CA-CELGENE-CAN-20220207904

PATIENT
  Age: 71 Year
  Sex: Female
  Weight: 60 kg

DRUGS (2)
  1. REBLOZYL [Suspect]
     Active Substance: LUSPATERCEPT-AAMT
     Indication: Anaemia
     Route: 058
     Dates: start: 20220202
  2. REBLOZYL [Suspect]
     Active Substance: LUSPATERCEPT-AAMT
     Indication: Myelodysplastic syndrome
     Dosage: 60 MILLIGRAM
     Route: 058
     Dates: start: 20220202

REACTIONS (8)
  - Vertigo [Recovering/Resolving]
  - Dyspnoea [Recovering/Resolving]
  - Full blood count decreased [Unknown]
  - Dizziness [Unknown]
  - Tooth disorder [Recovering/Resolving]
  - Skin exfoliation [Unknown]
  - Nausea [Unknown]
  - Off label use [Unknown]

NARRATIVE: CASE EVENT DATE: 20220208
